FAERS Safety Report 5080656-3 (Version None)
Quarter: 2006Q3

REPORT INFORMATION
  Report Type: 
  Country: None (occurrence: None)
  Receive Date: 20060809
  Receipt Date: 20060724
  Transmission Date: 20061208
  Serious: Yes (Life-Threatening, Hospitalization, Disabling, Other)
  Sender: FDA-Public Use
  Company Number: 2006AL001928

PATIENT
  Age: 55 Year
  Sex: Male

DRUGS (7)
  1. DIGOXIN [Suspect]
     Dosage: 0.25 MG; QD; PO
     Route: 048
     Dates: end: 20060207
  2. PROPRANOLOL [Concomitant]
  3. FUROSEMIDE [Concomitant]
  4. SPIRONOLACTONE [Concomitant]
  5. THIAMINE [Concomitant]
  6. VITAMIN B COMPLEX CAP [Concomitant]
  7. PERINDOPRIL ERUMINE [Concomitant]

REACTIONS (3)
  - BRADYCARDIA [None]
  - PERIPHERAL ISCHAEMIA [None]
  - THROMBOSIS [None]
